FAERS Safety Report 8214679-X (Version None)
Quarter: 2012Q1

REPORT INFORMATION
  Report Type: 
  Country: None (occurrence: None)
  Receive Date: 20120316
  Receipt Date: 20120313
  Transmission Date: 20120608
  Serious: Yes (Hospitalization)
  Sender: FDA-Public Use
  Company Number: FR-SANOFI-AVENTIS-2012SA016765

PATIENT
  Age: 86 Year
  Sex: Male

DRUGS (8)
  1. LANTUS [Suspect]
     Dosage: DOSE:100 INTERNATIONAL UNIT(S)/MILLILITRE
     Route: 058
  2. ACETAMINOPHEN AND TRAMADOL HCL [Suspect]
     Route: 048
  3. BROMAZEPAM [Concomitant]
  4. ACARBOSE [Suspect]
     Dosage: STRENGTH:100 MG
     Route: 048
     Dates: end: 20111001
  5. OLMIFON [Suspect]
     Dosage: STRENGTH: 300 MG
     Route: 048
     Dates: end: 20111001
  6. ASPIRIN [Concomitant]
     Dosage: STRENGTH: 75
  7. RAMIPRIL [Concomitant]
     Dosage: STRENGTH: 1.25
  8. AMIODARONE HYDROCHLORIDE [Concomitant]
     Dosage: STRENGTH:200

REACTIONS (2)
  - FALL [None]
  - HYPOGLYCAEMIA [None]
